FAERS Safety Report 7079222 (Version 3)
Quarter: 2014Q3

REPORT INFORMATION
  Report Type: Spontaneous
  Country: IT (occurrence: None)
  Receive Date: 20090803
  Receipt Date: 20140825
  Transmission Date: 20150326
  Serious: Yes (Hospitalization, Other)
  Sender: FDA-Public Use
  Company Number: 338898

PATIENT
  Age: 49 Year
  Sex: Female

DRUGS (5)
  1. CHLORPHENAMINE [Concomitant]
     Active Substance: CHLORPHENIRAMINE MALEATE
  2. SALINE [Concomitant]
     Active Substance: SODIUM CHLORIDE
  3. PACLITAXEL. [Suspect]
     Active Substance: PACLITAXEL
     Indication: LUNG NEOPLASM MALIGNANT
     Dosage: CYCLICAL
     Route: 042
     Dates: start: 20090710, end: 20090710
  4. PALONOSETRON [Concomitant]
     Active Substance: PALONOSETRON
  5. DEXAMETHASONE. [Concomitant]
     Active Substance: DEXAMETHASONE

REACTIONS (4)
  - Respiratory failure [None]
  - Bronchospasm [None]
  - Cyanosis [None]
  - Acute respiratory failure [None]

NARRATIVE: CASE EVENT DATE: 20090710
